FAERS Safety Report 4557924-4 (Version None)
Quarter: 2005Q1

REPORT INFORMATION
  Report Type: 
  Country: None (occurrence: None)
  Receive Date: 20050121
  Receipt Date: 20040202
  Transmission Date: 20050727
  Serious: No
  Sender: FDA-Public Use
  Company Number: US-BRISTOL-MYERS SQUIBB COMPANY-12494373

PATIENT
  Age: 55 Year
  Sex: Female
  Weight: 136 kg

DRUGS (12)
  1. SERZONE [Suspect]
     Indication: ANXIETY
     Route: 048
  2. SERZONE [Suspect]
     Indication: DEPRESSION
     Route: 048
  3. VALIUM [Concomitant]
  4. KLONOPIN [Concomitant]
  5. REMERON [Concomitant]
  6. AMBIEN [Concomitant]
  7. VOLMAX [Concomitant]
  8. INHALERS [Concomitant]
  9. IBUPROFEN [Concomitant]
  10. BENTYL [Concomitant]
  11. ALLOPURINOL [Concomitant]
  12. NEURONTIN [Concomitant]

REACTIONS (1)
  - LIVER FUNCTION TEST ABNORMAL [None]
